FAERS Safety Report 5378522-9 (Version None)
Quarter: 2007Q3

REPORT INFORMATION
  Report Type: 
  Country: None (occurrence: None)
  Receive Date: 20070702
  Receipt Date: 20070626
  Transmission Date: 20080115
  Serious: Yes (Other)
  Sender: FDA-Public Use
  Company Number: TAP2007Q00839

PATIENT
  Age: 78 Year
  Sex: Male
  Weight: 75 kg

DRUGS (1)
  1. LUPRON DEPOT-3 [Suspect]
     Indication: PROSTATE CANCER
     Dosage: 7.5 MG, 1 IN 1 M, INTRAMUSCULAR
     Route: 030

REACTIONS (2)
  - ARTERIOSCLEROSIS [None]
  - FEMORAL ARTERY OCCLUSION [None]
